FAERS Safety Report 19041586 (Version 1)
Quarter: 2021Q1

REPORT INFORMATION
  Report Type: Spontaneous
  Country: RO (occurrence: RO)
  Receive Date: 20210322
  Receipt Date: 20210322
  Transmission Date: 20210420
  Serious: Yes (Death, Other)
  Sender: FDA-Public Use
  Company Number: RO-ABBVIE-21K-135-3821990-00

PATIENT
  Age: 50 Year
  Sex: Male

DRUGS (4)
  1. FUROSEMID [Concomitant]
     Active Substance: FUROSEMIDE
     Indication: PRODUCT USED FOR UNKNOWN INDICATION
  2. AUGMENTIN [Concomitant]
     Active Substance: AMOXICILLIN\CLAVULANATE POTASSIUM
     Indication: PRODUCT USED FOR UNKNOWN INDICATION
  3. DEXAMETHASONE. [Concomitant]
     Active Substance: DEXAMETHASONE
     Indication: PRODUCT USED FOR UNKNOWN INDICATION
  4. KALETRA [Suspect]
     Active Substance: LOPINAVIR\RITONAVIR
     Indication: COVID-19
     Route: 048
     Dates: start: 20201109, end: 20201115

REACTIONS (10)
  - Haemorrhage [Unknown]
  - Platelet count abnormal [Unknown]
  - Coma hepatic [Fatal]
  - Off label use [Unknown]
  - Hepatic failure [Fatal]
  - Diarrhoea [Unknown]
  - Intra-abdominal fluid collection [Unknown]
  - Diabetes mellitus [Unknown]
  - Contraindicated product administered [Unknown]
  - Nausea [Unknown]

NARRATIVE: CASE EVENT DATE: 202011
